FAERS Safety Report 13221292 (Version 3)
Quarter: 2018Q2

REPORT INFORMATION
  Report Type: Report from Study
  Country: US (occurrence: US)
  Receive Date: 20170211
  Receipt Date: 20180528
  Transmission Date: 20180711
  Serious: Yes (Life-Threatening, Hospitalization, Other)
  Sender: FDA-Public Use
  Company Number: PHEH2017US004315

PATIENT
  Age: 50 Year
  Sex: Female

DRUGS (2)
  1. COSENTYX [Suspect]
     Active Substance: SECUKINUMAB
     Indication: PSORIASIS
     Dosage: 300 MG, QMO
     Route: 030
     Dates: start: 20170127
  2. COSENTYX [Suspect]
     Active Substance: SECUKINUMAB
     Dosage: UNK
     Route: 058

REACTIONS (18)
  - Chills [Unknown]
  - Immunosuppression [Unknown]
  - Diarrhoea [Recovering/Resolving]
  - Cough [Recovering/Resolving]
  - Oropharyngeal pain [Recovering/Resolving]
  - Headache [Recovering/Resolving]
  - Feeling abnormal [Unknown]
  - Pain in extremity [Unknown]
  - Asthenia [Unknown]
  - Pain [Recovering/Resolving]
  - Apparent death [Unknown]
  - Injection site bruising [Unknown]
  - Hypersomnia [Unknown]
  - Fatigue [Unknown]
  - Incorrect route of drug administration [Unknown]
  - Bronchitis chronic [Recovering/Resolving]
  - Back pain [Unknown]
  - Mobility decreased [Unknown]

NARRATIVE: CASE EVENT DATE: 20170127
